FAERS Safety Report 7072065-2 (Version None)
Quarter: 2010Q4

REPORT INFORMATION
  Report Type: 
  Country: None (occurrence: None)
  Receive Date: 20101029
  Receipt Date: 20101026
  Transmission Date: 20110411
  Serious: Yes (Hospitalization)
  Sender: FDA-Public Use
  Company Number: PHHY2010US50821

PATIENT
  Sex: Female

DRUGS (11)
  1. EXTAVIA [Suspect]
     Indication: MULTIPLE SCLEROSIS
     Dosage: 0.25 MG, QOD
     Route: 058
     Dates: start: 20100523
  2. METHOCARBAMOL [Concomitant]
     Dosage: 750 MG, TID
  3. FLUOXETINE [Concomitant]
     Dosage: 20 MG, QD
  4. IBUPROFEN [Concomitant]
     Dosage: 600 MG, TID
  5. SLEEP AID [Concomitant]
     Dosage: UNK, PRN
  6. STOOL SOFTENER [Concomitant]
     Dosage: UNK, PRN
  7. IRON SUPPLEMENTS [Concomitant]
     Dosage: 27 MG, QD
  8. METRONIDAZOLE [Concomitant]
     Dosage: 500 MG, BID
  9. CIPROFLOXACIN [Concomitant]
     Dosage: 500 MG, BID
  10. VITAMIN B [Concomitant]
     Dosage: SHOT MONTHLY
  11. VITAMIN D [Concomitant]
     Dosage: 50000, IU

REACTIONS (8)
  - ANAEMIA [None]
  - BALANCE DISORDER [None]
  - COLITIS [None]
  - DIZZINESS [None]
  - HAEMATOCHEZIA [None]
  - MUSCULAR WEAKNESS [None]
  - PAIN IN EXTREMITY [None]
  - SENSATION OF HEAVINESS [None]
